FAERS Safety Report 7215759-8 (Version None)
Quarter: 2011Q1

REPORT INFORMATION
  Report Type: 
  Country: None (occurrence: None)
  Receive Date: 20110107
  Receipt Date: 20110103
  Transmission Date: 20110831
  Serious: Yes (Other)
  Sender: FDA-Public Use
  Company Number: US-PFIZER INC-2011000312

PATIENT
  Sex: Female

DRUGS (2)
  1. ADVIL CONGESTION RELIEF [Suspect]
     Indication: NASAL CONGESTION
     Dosage: 1 DF, UNK
  2. ADVIL CONGESTION RELIEF [Suspect]
     Indication: NASOPHARYNGITIS

REACTIONS (3)
  - FEAR OF DEATH [None]
  - PALPITATIONS [None]
  - INSOMNIA [None]
